FAERS Safety Report 9216995 (Version 1)
Quarter: 2013Q2

REPORT INFORMATION
  Report Type: Spontaneous
  Country: US (occurrence: US)
  Receive Date: 20130408
  Receipt Date: 20130408
  Transmission Date: 20140414
  Serious: No
  Sender: FDA-Public Use
  Company Number: US-PFIZER INC-2013110014

PATIENT
  Age: 72 Year
  Sex: Male
  Weight: 42.18 kg

DRUGS (1)
  1. LYRICA [Suspect]
     Indication: NERVE INJURY
     Dosage: UNK
     Dates: start: 201303

REACTIONS (1)
  - Dry mouth [Unknown]
